FAERS Safety Report 4748776-8 (Version None)
Quarter: 2005Q3

REPORT INFORMATION
  Report Type: 
  Country: None (occurrence: None)
  Receive Date: 20050812
  Receipt Date: 20050620
  Transmission Date: 20060218
  Serious: Yes (Hospitalization)
  Sender: FDA-Public Use
  Company Number: 408543

PATIENT
  Age: 52 Year
  Sex: Female

DRUGS (2)
  1. PEGASYS [Suspect]
     Dosage: OTHER
     Route: 050
     Dates: start: 20041220, end: 20050327
  2. COPEGUS [Suspect]
     Dosage: ORAL
     Route: 048
     Dates: start: 20041220, end: 20050327

REACTIONS (3)
  - ALOPECIA [None]
  - HAEMOGLOBIN DECREASED [None]
  - IRRITABILITY [None]
